FAERS Safety Report 12075171 (Version 2)
Quarter: 2016Q1

REPORT INFORMATION
  Report Type: Spontaneous
  Country: US (occurrence: US)
  Receive Date: 20160212
  Receipt Date: 20160229
  Transmission Date: 20160526
  Serious: No
  Sender: FDA-Public Use
  Company Number: US-GILEAD-2016-0197824

PATIENT
  Age: 66 Year
  Sex: Male
  Weight: 89.8 kg

DRUGS (1)
  1. HARVONI [Suspect]
     Active Substance: LEDIPASVIR\SOFOSBUVIR
     Indication: PRODUCT USED FOR UNKNOWN INDICATION
     Dosage: 1 DF, QD
     Route: 048
     Dates: start: 20151121, end: 20160213

REACTIONS (3)
  - Influenza like illness [Recovered/Resolved]
  - Drug dose omission [Recovered/Resolved]
  - Treatment noncompliance [Recovered/Resolved]
